FAERS Safety Report 9576180 (Version 1)
Quarter: 2013Q4

REPORT INFORMATION
  Report Type: Spontaneous
  Country: US (occurrence: US)
  Receive Date: 20131001
  Receipt Date: 20131001
  Transmission Date: 20140711
  Serious: No
  Sender: FDA-Public Use
  Company Number: US-AMGEN-USASP2013001554

PATIENT
  Sex: Female

DRUGS (4)
  1. ENBREL [Suspect]
     Indication: RHEUMATOID ARTHRITIS
     Dosage: 50 MG, QWK
     Route: 058
     Dates: end: 20121111
  2. PREDNISONE [Concomitant]
     Dosage: 1 MG, UNK
  3. ARAVA [Concomitant]
     Dosage: 10 MG, UNK
  4. ONE A DAY WOMEN^S [Concomitant]
     Dosage: UNK

REACTIONS (2)
  - Condition aggravated [Unknown]
  - Drug effect decreased [Unknown]
